FAERS Safety Report 4814854-8 (Version None)
Quarter: 2005Q4

REPORT INFORMATION
  Report Type: 
  Country: None (occurrence: None)
  Receive Date: 20051027
  Receipt Date: 20051027
  Transmission Date: 20060501
  Serious: Yes (Other)
  Sender: FDA-Public Use
  Company Number: None

PATIENT
  Age: 73 Year
  Sex: Male
  Weight: 121.1 kg

DRUGS (11)
  1. LISINOPRIL [Suspect]
  2. OMEPRAZOLE [Suspect]
  3. OMEPRAZOLE [Concomitant]
  4. ATENOLOL [Concomitant]
  5. CYCLOBENZAPRINE HCL [Concomitant]
  6. HYDROCODONE 5/ACETAMINOPHEN 500MG [Concomitant]
  7. SULFAMETHOXAZOLE 800/TRIMETH 160MG [Concomitant]
  8. ATENOLOL [Concomitant]
  9. FELODIPINE [Concomitant]
  10. LISINOPRIL [Concomitant]
  11. RANITIDINE HCL [Concomitant]

REACTIONS (1)
  - SWELLING FACE [None]
